FAERS Safety Report 15985247 (Version 1)
Quarter: 2019Q1

REPORT INFORMATION
  Report Type: Spontaneous
  Country: US (occurrence: US)
  Receive Date: 20190220
  Receipt Date: 20190220
  Transmission Date: 20190418
  Serious: No
  Sender: FDA-Public Use
  Company Number: None

PATIENT
  Age: 9 Year
  Sex: Male
  Weight: 27 kg

DRUGS (1)
  1. OSELTAMIVIR [Suspect]
     Active Substance: OSELTAMIVIR
     Indication: INFLUENZA
     Dosage: ?          QUANTITY:10 SYRINGE;?
     Route: 048
     Dates: start: 20190217, end: 20190218

REACTIONS (3)
  - Vomiting [None]
  - Abdominal pain upper [None]
  - Malaise [None]

NARRATIVE: CASE EVENT DATE: 20190217
